FAERS Safety Report 9443692 (Version 2)
Quarter: 2014Q4

REPORT INFORMATION
  Report Type: Spontaneous
  Country: GL (occurrence: DK)
  Receive Date: 20130806
  Receipt Date: 20141003
  Transmission Date: 20150529
  Serious: Yes (Hospitalization, Disabling)
  Sender: FDA-Public Use
  Company Number: GL-MERCK-1307DNK017064

PATIENT
  Age: 24 Year
  Sex: Female

DRUGS (1)
  1. MARVELON [Suspect]
     Active Substance: DESOGESTREL\ETHINYL ESTRADIOL
     Indication: CONTRACEPTION
     Dosage: STYRKE: 150+30 MIKROGRAM
     Route: 048
     Dates: end: 20130702

REACTIONS (2)
  - Cerebral infarction [Recovering/Resolving]
  - Hemiparesis [Unknown]

NARRATIVE: CASE EVENT DATE: 20130702
